FAERS Safety Report 25223112 (Version 1)
Quarter: 2025Q2

REPORT INFORMATION
  Report Type: Spontaneous
  Country: PL (occurrence: PL)
  Receive Date: 20250422
  Receipt Date: 20250422
  Transmission Date: 20250717
  Serious: Yes (Death, Hospitalization, Other)
  Sender: FRESENIUS KABI
  Company Number: PL-009507513-2264626

PATIENT
  Age: 71 Year
  Sex: Female
  Weight: 51 kg

DRUGS (7)
  1. PACLITAXEL [Suspect]
     Active Substance: PACLITAXEL
     Indication: Cervix carcinoma
     Dates: start: 20250110, end: 20250110
  2. PACLITAXEL [Suspect]
     Active Substance: PACLITAXEL
     Dates: start: 20250110, end: 20250110
  3. PACLITAXEL [Suspect]
     Active Substance: PACLITAXEL
     Dates: start: 20250131, end: 20250131
  4. PEMBROLIZUMAB [Suspect]
     Active Substance: PEMBROLIZUMAB
     Indication: Cervix carcinoma
     Route: 042
     Dates: start: 20250110, end: 20250110
  5. PEMBROLIZUMAB [Suspect]
     Active Substance: PEMBROLIZUMAB
     Route: 042
     Dates: start: 20250131, end: 20250131
  6. CARBOPLATIN [Suspect]
     Active Substance: CARBOPLATIN
     Indication: Cervix carcinoma
     Dates: start: 20250110, end: 20250110
  7. CARBOPLATIN [Suspect]
     Active Substance: CARBOPLATIN
     Dates: start: 20250131, end: 20250131

REACTIONS (3)
  - Myositis [Fatal]
  - Myocarditis [Fatal]
  - Hepatitis [Fatal]

NARRATIVE: CASE EVENT DATE: 20250220
